FAERS Safety Report 6480278-3 (Version None)
Quarter: 2009Q4

REPORT INFORMATION
  Report Type: 
  Country: None (occurrence: None)
  Receive Date: 20091123
  Receipt Date: 20090806
  Transmission Date: 20100525
  Serious: No
  Sender: FDA-Public Use
  Company Number: 8049994

PATIENT
  Age: 59 Year
  Sex: Female
  Weight: 43.35 kg

DRUGS (9)
  1. CIMZIA [Suspect]
     Indication: CROHN'S DISEASE
     Dosage: 400 MG SC
     Route: 058
     Dates: start: 20090723
  2. ENTOCORT EC [Concomitant]
  3. ZOLOFT [Concomitant]
  4. NEXIUM [Concomitant]
  5. ZEBETA [Concomitant]
  6. SODIUM BICARBONATE [Concomitant]
  7. COUMADIN [Concomitant]
  8. MAGNESIUM [Concomitant]
  9. VITAMIN B-12 [Concomitant]

REACTIONS (2)
  - ARTHRALGIA [None]
  - MIGRAINE [None]
